FAERS Safety Report 20968586 (Version 1)
Quarter: 2022Q2

REPORT INFORMATION
  Report Type: Spontaneous
  Country: None (occurrence: US)
  Receive Date: 20220616
  Receipt Date: 20220616
  Transmission Date: 20220721
  Serious: Yes (Hospitalization)
  Sender: FDA-Public Use
  Company Number: US-Kindeva Drug Delivery L.P.-2129979

PATIENT
  Sex: Female

DRUGS (1)
  1. ALBUTEROL SULFATE [Suspect]
     Active Substance: ALBUTEROL SULFATE
     Indication: COVID-19
     Route: 055

REACTIONS (3)
  - Pneumonia [Unknown]
  - Product quality issue [Unknown]
  - Product dose omission issue [Unknown]
